FAERS Safety Report 23193032 (Version 7)
Quarter: 2024Q4

REPORT INFORMATION
  Report Type: Report from Study
  Country: CH (occurrence: CH)
  Receive Date: 20231116
  Receipt Date: 20241127
  Transmission Date: 20250114
  Serious: Yes (Other)
  Sender: ABBVIE
  Company Number: CH-ABBVIE-21K-151-4091372-00

PATIENT
  Age: 70 Year
  Sex: Female
  Weight: 63 kg

DRUGS (20)
  1. VENETOCLAX [Suspect]
     Active Substance: VENETOCLAX
     Indication: Chronic lymphocytic leukaemia
     Route: 048
     Dates: start: 20210715, end: 20210721
  2. VENETOCLAX [Suspect]
     Active Substance: VENETOCLAX
     Indication: Chronic lymphocytic leukaemia
     Route: 048
     Dates: start: 20210722, end: 20210728
  3. VENETOCLAX [Suspect]
     Active Substance: VENETOCLAX
     Indication: Chronic lymphocytic leukaemia
     Route: 048
     Dates: start: 20210729, end: 20210804
  4. VENETOCLAX [Suspect]
     Active Substance: VENETOCLAX
     Indication: Chronic lymphocytic leukaemia
     Route: 048
     Dates: start: 20210805, end: 20210811
  5. VENETOCLAX [Suspect]
     Active Substance: VENETOCLAX
     Indication: Chronic lymphocytic leukaemia
     Route: 048
     Dates: start: 20210812, end: 20210818
  6. VENETOCLAX [Suspect]
     Active Substance: VENETOCLAX
     Indication: Chronic lymphocytic leukaemia
     Route: 048
     Dates: start: 20210819, end: 20211028
  7. VENETOCLAX [Suspect]
     Active Substance: VENETOCLAX
     Indication: Chronic lymphocytic leukaemia
     Route: 048
     Dates: start: 20211111, end: 20220105
  8. VENETOCLAX [Suspect]
     Active Substance: VENETOCLAX
     Indication: Chronic lymphocytic leukaemia
     Route: 048
     Dates: start: 20220117, end: 20220502
  9. VENETOCLAX [Suspect]
     Active Substance: VENETOCLAX
     Indication: Chronic lymphocytic leukaemia
     Route: 048
     Dates: start: 20220503, end: 20240702
  10. VENETOCLAX [Suspect]
     Active Substance: VENETOCLAX
     Indication: Chronic lymphocytic leukaemia
     Dosage: 0 MG
     Route: 048
     Dates: start: 20220106, end: 20220316
  11. VALTREX [Concomitant]
     Active Substance: VALACYCLOVIR HYDROCHLORIDE
     Indication: Product used for unknown indication
     Dosage: 1000 MILLIGRAM
     Route: 048
     Dates: start: 20210712, end: 20231221
  12. ELTROXIN LF [Concomitant]
     Indication: Product used for unknown indication
     Route: 048
  13. BACTRIM [Concomitant]
     Active Substance: SULFAMETHOXAZOLE\TRIMETHOPRIM
     Indication: Product used for unknown indication
     Dosage: 800/160 MG?FREQUENCY: MONDAY/WEDNESDAY/FRIDAY
     Route: 048
     Dates: start: 20210712, end: 20210728
  14. CINNARIZINE [Concomitant]
     Active Substance: CINNARIZINE
     Indication: Product used for unknown indication
     Dosage: TIME INTERVAL: AS NECESSARY
     Route: 048
     Dates: start: 20210902
  15. SULFAMETHOXAZOLE\TRIMETHOPRIM [Concomitant]
     Active Substance: SULFAMETHOXAZOLE\TRIMETHOPRIM
     Indication: Product used for unknown indication
     Dosage: 800/160MG, NOPIL FORTE
     Route: 048
     Dates: start: 20210902
  16. ZOLPIDEM [Concomitant]
     Active Substance: ZOLPIDEM TARTRATE
     Indication: Product used for unknown indication
     Dosage: FREQUENCY TEXT: AS NEEDED,
     Route: 048
     Dates: end: 20210901
  17. KINUREA H [Concomitant]
     Indication: Product used for unknown indication
     Route: 048
     Dates: end: 20210901
  18. INDERAL [Concomitant]
     Active Substance: PROPRANOLOL HYDROCHLORIDE
     Indication: Product used for unknown indication
     Route: 048
     Dates: start: 20200629
  19. URSODIOL [Concomitant]
     Active Substance: URSODIOL
     Indication: Product used for unknown indication
     Route: 048
     Dates: end: 20210901
  20. ZOLPIDEM TARTRATE [Concomitant]
     Active Substance: ZOLPIDEM TARTRATE
     Indication: Product used for unknown indication
     Route: 048
     Dates: start: 20210902

REACTIONS (8)
  - Neutropenia [Recovered/Resolved]
  - Polyneuropathy [Not Recovered/Not Resolved]
  - Tendonitis [Recovered/Resolved]
  - Nausea [Recovered/Resolved]
  - Neutropenia [Recovered/Resolved]
  - COVID-19 [Recovered/Resolved]
  - Infection [Recovered/Resolved]
  - Squamous cell carcinoma of skin [Recovered/Resolved]

NARRATIVE: CASE EVENT DATE: 20210729
